FAERS Safety Report 8050883-1 (Version None)
Quarter: 2012Q1

REPORT INFORMATION
  Report Type: 
  Country: None (occurrence: None)
  Receive Date: 20120117
  Receipt Date: 20120109
  Transmission Date: 20120608
  Serious: Yes (Hospitalization)
  Sender: FDA-Public Use
  Company Number: PHHY2012BR002579

PATIENT
  Sex: Female

DRUGS (3)
  1. EXELON [Suspect]
     Indication: DEMENTIA ALZHEIMER'S TYPE
     Dosage: 13.3 MG\24H
     Route: 062
  2. RISPERIDONE [Concomitant]
     Indication: DEMENTIA ALZHEIMER'S TYPE
     Dosage: 1 MG, UNK
  3. CITALOPRAM HYDROBROMIDE [Concomitant]
     Dosage: 1 DF, UNK

REACTIONS (2)
  - LUNG INFECTION [None]
  - DYSPNOEA [None]
